FAERS Safety Report 6987515-7 (Version None)
Quarter: 2010Q3

REPORT INFORMATION
  Report Type: 
  Country: None (occurrence: None)
  Receive Date: 20100916
  Receipt Date: 20100908
  Transmission Date: 20110219
  Serious: No
  Sender: FDA-Public Use
  Company Number: US-PFIZER INC-2010113539

PATIENT

DRUGS (2)
  1. TOVIAZ [Suspect]
     Dosage: UNK
  2. WARFARIN SODIUM [Interacting]

REACTIONS (1)
  - DRUG INTERACTION [None]
